FAERS Safety Report 5702018-5 (Version None)
Quarter: 2008Q2

REPORT INFORMATION
  Report Type: 
  Country: None (occurrence: None)
  Receive Date: 20080411
  Receipt Date: 20071016
  Transmission Date: 20081010
  Serious: No
  Sender: FDA-Public Use
  Company Number: US-ABBOTT-07P-163-0421497-00

PATIENT
  Sex: Male
  Weight: 102.3 kg

DRUGS (1)
  1. DEPAKOTE [Suspect]
     Indication: AFFECTIVE DISORDER
     Route: 048
     Dates: start: 20071007

REACTIONS (2)
  - FATIGUE [None]
  - PUPILLARY REFLEX IMPAIRED [None]
